FAERS Safety Report 7960088-8 (Version None)
Quarter: 2011Q4

REPORT INFORMATION
  Report Type: 
  Country: None (occurrence: None)
  Receive Date: 20111206
  Receipt Date: 20111129
  Transmission Date: 20120403
  Serious: Yes (Other)
  Sender: FDA-Public Use
  Company Number: PHHY2011GR105492

PATIENT
  Age: 40 Year
  Sex: Male

DRUGS (2)
  1. EXJADE [Suspect]
     Dosage: 3 UKN, UNK
  2. EXJADE [Suspect]
     Indication: THALASSAEMIA
     Dosage: 4.5 UKN, UNK

REACTIONS (1)
  - LEUKOCYTOSIS [None]
